FAERS Safety Report 6054082-4 (Version None)
Quarter: 2009Q1

REPORT INFORMATION
  Report Type: 
  Country: None (occurrence: None)
  Receive Date: 20090127
  Receipt Date: 20090116
  Transmission Date: 20090719
  Serious: Yes (Disabling)
  Sender: FDA-Public Use
  Company Number: GB-AMGEN-US329287

PATIENT
  Sex: Female

DRUGS (2)
  1. ENBREL [Suspect]
     Indication: PSORIATIC ARTHROPATHY
     Dosage: 25 MG (FREQUENCY UNKNOWN)
     Route: 058
     Dates: start: 20061224, end: 20081106
  2. METHOTREXATE [Concomitant]
     Indication: PSORIATIC ARTHROPATHY
     Dosage: 20 MG (FREQUENCY UNKNOWN)
     Route: 058
     Dates: end: 20081101

REACTIONS (1)
  - NEUROPATHY PERIPHERAL [None]
